FAERS Safety Report 7457357-7 (Version None)
Quarter: 2011Q2

REPORT INFORMATION
  Report Type: 
  Country: None (occurrence: None)
  Receive Date: 20110504
  Receipt Date: 20110419
  Transmission Date: 20111010
  Serious: Yes (Other)
  Sender: FDA-Public Use
  Company Number: US-JNJFOC-20110204846

PATIENT
  Sex: Female
  Weight: 86.18 kg

DRUGS (14)
  1. PREDNISONE [Suspect]
     Indication: COLITIS ULCERATIVE
  2. PREDNISONE [Suspect]
  3. XANAX [Concomitant]
     Indication: SLEEP DISORDER
  4. PROTONIX [Concomitant]
     Indication: BLOOD CHOLESTEROL
  5. MAALOX [Concomitant]
  6. REMICADE [Suspect]
     Indication: COLITIS ULCERATIVE
     Route: 042
  7. CITRUCEL [Concomitant]
  8. TUMS [Concomitant]
  9. NITROGLYCERIN [Concomitant]
     Indication: ANAL FISSURE
  10. LEVAQUIN [Suspect]
     Indication: BRONCHITIS
     Route: 048
  11. ZOCOR [Suspect]
     Indication: BLOOD CHOLESTEROL
     Route: 048
  12. IBUPROFEN [Concomitant]
  13. FISH OIL [Concomitant]
  14. LIALDA [Concomitant]
     Dosage: 2.4 TO 4.8 GM PER DAY

REACTIONS (15)
  - NAUSEA [None]
  - COLITIS ULCERATIVE [None]
  - MYALGIA [None]
  - JOINT STIFFNESS [None]
  - HAEMOGLOBIN DECREASED [None]
  - BRONCHITIS [None]
  - PAIN IN EXTREMITY [None]
  - SINUS CONGESTION [None]
  - ARTHRALGIA [None]
  - INSOMNIA [None]
  - RHINORRHOEA [None]
  - DIARRHOEA [None]
  - MUSCULOSKELETAL STIFFNESS [None]
  - OEDEMA PERIPHERAL [None]
  - OROPHARYNGEAL PAIN [None]
